FAERS Safety Report 24938865 (Version 1)
Quarter: 2025Q1

REPORT INFORMATION
  Report Type: Spontaneous
  Country: US (occurrence: None)
  Receive Date: 20250206
  Receipt Date: 20250206
  Transmission Date: 20250408
  Serious: Yes (unspecified)
  Sender: FDA-CTU
  Company Number: None

PATIENT
  Age: 75 Year
  Sex: Female
  Weight: 98.1 kg

DRUGS (2)
  1. LEQEMBI [Suspect]
     Active Substance: LECANEMAB-IRMB
     Indication: Dementia Alzheimer^s type
     Route: 041
     Dates: start: 20250206, end: 20250206
  2. LEQEMBI [Concomitant]
     Active Substance: LECANEMAB-IRMB
     Dates: start: 20250206, end: 20250206

REACTIONS (5)
  - Headache [None]
  - Tremor [None]
  - Chills [None]
  - Infusion related reaction [None]
  - Blood pressure abnormal [None]

NARRATIVE: CASE EVENT DATE: 20250206
